FAERS Safety Report 10307539 (Version 1)
Quarter: 2014Q3

REPORT INFORMATION
  Report Type: Spontaneous
  Country: US (occurrence: None)
  Receive Date: 20140714
  Receipt Date: 20140714
  Transmission Date: 20150326
  Serious: No
  Sender: FDA-Public Use
  Company Number: None

PATIENT
  Age: 29 Year
  Sex: Male
  Weight: 79.38 kg

DRUGS (1)
  1. SERTRALINE HCL [Suspect]
     Active Substance: SERTRALINE HYDROCHLORIDE
     Indication: ANTIDEPRESSANT THERAPY
     Dosage: 1 PILL ONCE DAILY TAKEN BY MOUTH
     Route: 048
     Dates: start: 20140427, end: 20140603

REACTIONS (8)
  - Pyrexia [None]
  - Malaise [None]
  - Dizziness [None]
  - Sinusitis [None]
  - Paraesthesia [None]
  - Diarrhoea [None]
  - Confusional state [None]
  - Abdominal discomfort [None]

NARRATIVE: CASE EVENT DATE: 20140613
